FAERS Safety Report 16406669 (Version 1)
Quarter: 2019Q2

REPORT INFORMATION
  Report Type: Report from Study
  Country: PL (occurrence: PL)
  Receive Date: 20190607
  Receipt Date: 20190607
  Transmission Date: 20190711
  Serious: Yes (Hospitalization, Other)
  Sender: FDA-Public Use
  Company Number: PL-BRISTOL-MYERS SQUIBB COMPANY-BMS-2019-054466

PATIENT
  Age: 62 Year
  Sex: Male

DRUGS (2)
  1. NKTR-214 [Suspect]
     Active Substance: BEMPEGALDESLEUKIN
     Indication: NON-SMALL CELL LUNG CANCER
     Dosage: 0.006 MILLIGRAM/KILOGRAM, Q3WK
     Route: 042
     Dates: start: 20190403
  2. NIVOLUMAB [Suspect]
     Active Substance: NIVOLUMAB
     Indication: NON-SMALL CELL LUNG CANCER
     Dosage: 360 MILLIGRAM, Q3WK
     Route: 042
     Dates: start: 20190403

REACTIONS (1)
  - Pneumocystis jirovecii pneumonia [Unknown]

NARRATIVE: CASE EVENT DATE: 20190529
